FAERS Safety Report 10190981 (Version 3)
Quarter: 2014Q2

REPORT INFORMATION
  Report Type: Report from Study
  Country: US (occurrence: US)
  Receive Date: 20140523
  Receipt Date: 20140626
  Transmission Date: 20141212
  Serious: Yes (Hospitalization, Other)
  Sender: FDA-Public Use
  Company Number: US-ROCHE-1366264

PATIENT
  Age: 61 Year
  Sex: Male
  Weight: 92.62 kg

DRUGS (9)
  1. AVASTIN [Suspect]
     Indication: COLORECTAL CANCER
     Dosage: 6 MONTHS AGO.
     Route: 042
     Dates: start: 201310, end: 201401
  2. AVASTIN [Suspect]
     Indication: COLORECTAL CANCER METASTATIC
  3. XELODA [Suspect]
     Indication: COLORECTAL CANCER
     Route: 048
     Dates: end: 201302
  4. NEXIUM [Concomitant]
     Indication: BACTERIAL INFECTION
     Route: 048
  5. CEFTIN [Concomitant]
     Dosage: FOR 2 WEEKS
     Route: 048
     Dates: start: 201403
  6. PROTONIX (OMEPRAZOLE) [Concomitant]
     Indication: GASTROOESOPHAGEAL REFLUX DISEASE
     Route: 048
     Dates: start: 201403
  7. FLUCONAZOLE [Concomitant]
     Indication: FUNGAL INFECTION
     Dosage: FOR 2 WEEKS
     Route: 048
     Dates: start: 201403
  8. DIOVAN [Concomitant]
     Indication: BLOOD PRESSURE
     Route: 044
     Dates: start: 2012
  9. VITAMIN C [Concomitant]
     Route: 048

REACTIONS (7)
  - Joint abscess [Recovering/Resolving]
  - Wound closure [Not Recovered/Not Resolved]
  - Sepsis [Recovering/Resolving]
  - Temperature intolerance [Recovered/Resolved]
  - Pain [Unknown]
  - Hypotension [Unknown]
  - Bone abscess [Recovering/Resolving]
